FAERS Safety Report 10876402 (Version 1)
Quarter: 2015Q1

REPORT INFORMATION
  Report Type: Report from Study
  Country: IN (occurrence: IN)
  Receive Date: 20150228
  Receipt Date: 20150228
  Transmission Date: 20150721
  Serious: Yes (Other)
  Sender: FDA-Public Use
  Company Number: PHHY2012IN101029

PATIENT
  Sex: Male

DRUGS (1)
  1. GLIVEC [Suspect]
     Active Substance: IMATINIB MESYLATE
     Indication: CHRONIC MYELOID LEUKAEMIA
     Dosage: 600 MG
     Route: 048

REACTIONS (5)
  - Skin sensitisation [Unknown]
  - Skin abrasion [Unknown]
  - Head injury [Unknown]
  - Otorrhoea [Unknown]
  - Inguinal hernia [Unknown]
